FAERS Safety Report 12227921 (Version 2)
Quarter: 2016Q2

REPORT INFORMATION
  Report Type: Report from Study
  Country: US (occurrence: US)
  Receive Date: 20160401
  Receipt Date: 20160420
  Transmission Date: 20160815
  Serious: No
  Sender: FDA-Public Use
  Company Number: US-AMGEN-USASL2016037642

PATIENT
  Age: 70 Year
  Sex: Female

DRUGS (1)
  1. ENBREL [Suspect]
     Active Substance: ETANERCEPT
     Indication: RHEUMATOID ARTHRITIS
     Dosage: 50 MG, QWK
     Route: 065
     Dates: start: 20160316

REACTIONS (9)
  - Therapeutic response decreased [Unknown]
  - Impaired healing [Unknown]
  - Decreased appetite [Unknown]
  - Skin ulcer [Not Recovered/Not Resolved]
  - Rash pruritic [Unknown]
  - Device issue [Unknown]
  - Diarrhoea [Unknown]
  - Rash erythematous [Unknown]
  - Device use error [Unknown]

NARRATIVE: CASE EVENT DATE: 2016
